FAERS Safety Report 6014372-8 (Version None)
Quarter: 2008Q4

REPORT INFORMATION
  Report Type: 
  Country: None (occurrence: None)
  Receive Date: 20081219
  Receipt Date: 20080509
  Transmission Date: 20090506
  Serious: No
  Sender: FDA-Public Use
  Company Number: A0728154A

PATIENT
  Sex: Female

DRUGS (1)
  1. AVODART [Suspect]
     Indication: DRUG USE FOR UNKNOWN INDICATION
     Route: 050

REACTIONS (4)
  - BREAST PAIN [None]
  - BREAST SWELLING [None]
  - BREAST TENDERNESS [None]
  - PATERNAL DRUGS AFFECTING FOETUS [None]
